FAERS Safety Report 19684553 (Version 1)
Quarter: 2021Q3

REPORT INFORMATION
  Report Type: Spontaneous
  Country: US (occurrence: US)
  Receive Date: 20210811
  Receipt Date: 20210811
  Transmission Date: 20211014
  Serious: Yes (Other)
  Sender: FDA-Public Use
  Company Number: US-SUNOVION-2021SUN003001

PATIENT
  Sex: Female

DRUGS (1)
  1. LATUDA [Suspect]
     Active Substance: LURASIDONE HYDROCHLORIDE
     Dosage: 100 MG
     Route: 048

REACTIONS (8)
  - Abdominal pain upper [Unknown]
  - Insomnia [Unknown]
  - Swelling [Unknown]
  - Therapy cessation [Unknown]
  - Erythema [Unknown]
  - Vomiting [Unknown]
  - Eating disorder [Unknown]
  - Diarrhoea [Unknown]
